FAERS Safety Report 8560855-6 (Version None)
Quarter: 2012Q3

REPORT INFORMATION
  Report Type: 
  Country: None (occurrence: None)
  Receive Date: 20120802
  Receipt Date: 20120730
  Transmission Date: 20120928
  Serious: Yes (Death, Other)
  Sender: FDA-Public Use
  Company Number: IE-B.I. PHARMACEUTICALS,INC./RIDGEFIELD-2012-UK-00884UK

PATIENT
  Age: 86 Year
  Sex: Female
  Weight: 67 kg

DRUGS (8)
  1. ARICEPT [Concomitant]
     Dosage: 10 MG
     Dates: end: 20120528
  2. FEMARA [Concomitant]
     Indication: BREAST CANCER
     Dosage: 2.5 MG
     Dates: end: 20120528
  3. PANTOPRAZOLE [Concomitant]
     Indication: GASTRITIS
     Dosage: 40 MG
  4. NITROFURANTOIN [Concomitant]
     Indication: URINARY TRACT INFECTION
     Dosage: 100 MG
  5. BETAHISTINE [Concomitant]
     Indication: VERTIGO
     Dosage: 16 MG
  6. PRADAXA [Suspect]
     Indication: THROMBOSIS PROPHYLAXIS
     Dosage: 220 MG
     Route: 048
     Dates: start: 20120520, end: 20120618
  7. PERINDOPRIL ERBUMINE [Concomitant]
     Indication: HYPERTENSION
     Dosage: 5 MG
     Dates: end: 20120528
  8. CLARITHROMYCIN [Concomitant]
     Indication: INFECTION
     Dosage: 500 MG
     Dates: start: 20120609, end: 20120613

REACTIONS (2)
  - HAEMATURIA [None]
  - PULMONARY EMBOLISM [None]
